FAERS Safety Report 8593965-8 (Version None)
Quarter: 2012Q3

REPORT INFORMATION
  Report Type: 
  Country: None (occurrence: None)
  Receive Date: 20120814
  Receipt Date: 20120807
  Transmission Date: 20120928
  Serious: Yes (Other)
  Sender: FDA-Public Use
  Company Number: DE-PFIZER INC-2012192065

PATIENT
  Age: 60 Year
  Sex: Female
  Weight: 85 kg

DRUGS (1)
  1. REVATIO [Suspect]
     Indication: PULMONARY HYPERTENSION
     Dosage: 20 MG, 3X/DAY
     Route: 048
     Dates: start: 20120211, end: 20120223

REACTIONS (4)
  - SOMNOLENCE [None]
  - MALAISE [None]
  - ASTHENIA [None]
  - DIZZINESS [None]
